FAERS Safety Report 9240526 (Version 1)
Quarter: 2013Q1

REPORT INFORMATION
  Report Type: Spontaneous
  Country: US (occurrence: None)
  Receive Date: 20121120
  Receipt Date: 20121120
  Transmission Date: 20140127
  Serious: No
  Sender: FDA-Public Use
  Company Number: 1000037999

PATIENT
  Age: 69 Year
  Sex: Female

DRUGS (6)
  1. VIIBRYD [Suspect]
     Indication: DEPRESSION
     Route: 048
     Dates: start: 20120613, end: 20120619
  2. VIIBRYD [Suspect]
     Indication: DEPRESSION
     Route: 048
     Dates: start: 20120627, end: 20120629
  3. XANAX (ALPRAZOLAM) (ALPRAZOLAM) [Concomitant]
  4. AMLODIPINE (AMLODIPINE) (AMLODIPINE) [Concomitant]
  5. LANTUS (INSULIN GLARGINE) (INSULIN GLARGINE) [Concomitant]
  6. BENTYL (DICYCLOMINE) (DICYCLOMINE) [Concomitant]

REACTIONS (8)
  - Confusional state [None]
  - Dysarthria [None]
  - Vision blurred [None]
  - Ataxia [None]
  - Fatigue [None]
  - Gait disturbance [None]
  - Coordination abnormal [None]
  - Fall [None]
